FAERS Safety Report 22072162 (Version 1)
Quarter: 2023Q1

REPORT INFORMATION
  Report Type: Spontaneous
  Country: US (occurrence: US)
  Receive Date: 20230308
  Receipt Date: 20230308
  Transmission Date: 20230417
  Serious: No
  Sender: FDA-Public Use
  Company Number: US-LEO Pharma-349819

PATIENT
  Age: 19 Year
  Sex: Female

DRUGS (2)
  1. ADBRY [Suspect]
     Active Substance: TRALOKINUMAB-LDRM
     Indication: Dermatitis atopic
     Dosage: DOSAGE: 2 SYRINGES (300 MG) UNDER THE SKIN EVERY TWO WEEKS
     Dates: start: 20230112
  2. ADBRY [Suspect]
     Active Substance: TRALOKINUMAB-LDRM
     Indication: Dermatitis atopic
     Dosage: DOSAGE: 2 SYRINGES (300 MG) UNDER THE SKIN EVERY TWO WEEKS
     Dates: start: 20230112

REACTIONS (2)
  - Incorrect dose administered [Unknown]
  - Dermatitis atopic [Unknown]

NARRATIVE: CASE EVENT DATE: 20230112
